FAERS Safety Report 16599754 (Version 1)
Quarter: 2019Q3

REPORT INFORMATION
  Report Type: Spontaneous
  Country: IT (occurrence: IT)
  Receive Date: 20190720
  Receipt Date: 20190720
  Transmission Date: 20191004
  Serious: Yes (Other)
  Sender: FDA-Public Use
  Company Number: IT-AUROBINDO-AUR-APL-2019-035905

PATIENT

DRUGS (7)
  1. GLICLAZIDE [Interacting]
     Active Substance: GLICLAZIDE
     Dosage: DOSAGE FORM: UNSPECIFIED
     Route: 065
  2. ABIRATERONE. [Interacting]
     Active Substance: ABIRATERONE ACETATE
     Indication: HORMONE-REFRACTORY PROSTATE CANCER
  3. PREDNISONE. [Interacting]
     Active Substance: PREDNISONE
     Indication: HORMONE REPLACEMENT THERAPY
  4. ABIRATERONE. [Interacting]
     Active Substance: ABIRATERONE ACETATE
     Indication: PROSTATE CANCER
     Dosage: UNK
     Route: 048
  5. PREDNISONE. [Interacting]
     Active Substance: PREDNISONE
     Indication: PROSTATE CANCER
     Dosage: DOSAGE FORM: UNSPECIFIED
     Route: 065
  6. SIMVASTATIN. [Suspect]
     Active Substance: SIMVASTATIN
     Indication: PRODUCT USED FOR UNKNOWN INDICATION
     Dosage: DOSAGE FORM: UNSPECIFIED
     Route: 065
  7. GLICLAZIDE [Interacting]
     Active Substance: GLICLAZIDE
     Indication: TYPE 2 DIABETES MELLITUS
     Dosage: DOSAGE FORM: UNSPECIFIED
     Route: 065

REACTIONS (2)
  - Hypoglycaemia [Recovered/Resolved]
  - Drug interaction [Recovered/Resolved]
